FAERS Safety Report 7799621 (Version 2)
Quarter: 2015Q2

REPORT INFORMATION
  Report Type: Spontaneous
  Country: GB (occurrence: GB)
  Receive Date: 20110204
  Receipt Date: 20150429
  Transmission Date: 20150821
  Serious: Yes (Hospitalization, Other)
  Sender: FDA-Public Use
  Company Number: PHFR2011GB00549

PATIENT
  Age: 36 Year
  Sex: Female

DRUGS (9)
  1. CLOZARIL [Suspect]
     Active Substance: CLOZAPINE
     Indication: SCHIZOPHRENIA
     Dosage: UNK
     Route: 048
     Dates: start: 20101209
  2. CLOZARIL [Suspect]
     Active Substance: CLOZAPINE
     Dosage: 350 MG, (100 MG MORNING AND  250 MG NIGHT)
     Route: 048
     Dates: start: 20110104
  3. RISPERIDONE. [Concomitant]
     Active Substance: RISPERIDONE
     Indication: SCHIZOPHRENIA
     Dosage: 4 MG, UNK
     Route: 048
  4. BECLOMETASONE [Concomitant]
     Active Substance: BECLOMETHASONE DIPROPIONATE
     Indication: ASTHMA
     Dosage: 2 PUFFS PER DAY
     Route: 055
  5. CLOZARIL [Suspect]
     Active Substance: CLOZAPINE
     Dosage: 250 MG,
     Route: 048
  6. CLOZARIL [Suspect]
     Active Substance: CLOZAPINE
     Dosage: 300 MG,
     Route: 048
     Dates: start: 20101231
  7. CLOZARIL [Suspect]
     Active Substance: CLOZAPINE
     Dosage: 12.5 MG,
     Route: 048
     Dates: start: 20101210
  8. VENLAFAXINE [Concomitant]
     Active Substance: VENLAFAXINE HYDROCHLORIDE
     Indication: DEPRESSIVE SYMPTOM
     Dosage: 225 MG, UNK
     Route: 048
  9. SALBUTAMOL [Concomitant]
     Active Substance: ALBUTEROL
     Indication: ASTHMA
     Dosage: 2 PUFFS OF 100 UG 4 TIMES A DAY
     Route: 055

REACTIONS (6)
  - Tongue biting [Recovered/Resolved]
  - Fatigue [Recovered/Resolved]
  - Nausea [Recovered/Resolved]
  - Urinary incontinence [Recovered/Resolved]
  - Generalised tonic-clonic seizure [Recovered/Resolved]
  - Myoclonus [Unknown]

NARRATIVE: CASE EVENT DATE: 20110104
